FAERS Safety Report 6882103-5 (Version None)
Quarter: 2010Q3

REPORT INFORMATION
  Report Type: 
  Country: None (occurrence: None)
  Receive Date: 20100727
  Receipt Date: 20100727
  Transmission Date: 20110219
  Serious: No
  Sender: FDA-Public Use
  Company Number: None

PATIENT
  Age: 47 Year
  Sex: Female
  Weight: 63.5036 kg

DRUGS (2)
  1. GIANVI 3MG/0.02 MG TEVA [Suspect]
     Indication: CYST
     Dosage: ONE PILL PER DAY DAILY PO
     Route: 048
     Dates: start: 20100713, end: 20100724
  2. GIANVI 3MG/0.02 MG TEVA [Suspect]
     Indication: ENDOMETRIOSIS
     Dosage: ONE PILL PER DAY DAILY PO
     Route: 048
     Dates: start: 20100713, end: 20100724

REACTIONS (4)
  - ABDOMINAL DISTENSION [None]
  - HEART RATE INCREASED [None]
  - HOT FLUSH [None]
  - PRODUCT SUBSTITUTION ISSUE [None]
